FAERS Safety Report 12583861 (Version 1)
Quarter: 2016Q3

REPORT INFORMATION
  Report Type: Spontaneous
  Country: CN (occurrence: CN)
  Receive Date: 20160722
  Receipt Date: 20160722
  Transmission Date: 20161109
  Serious: Yes (Other)
  Sender: FDA-Public Use
  Company Number: CN-BRISTOL-MYERS SQUIBB COMPANY-BMS-2016-060132

PATIENT
  Age: 58 Year
  Sex: Female

DRUGS (1)
  1. BARACLUDE [Suspect]
     Active Substance: ENTECAVIR
     Indication: HEPATITIS B
     Dosage: 0.5 MG, QD
     Route: 048
     Dates: start: 2009

REACTIONS (5)
  - Cerebral infarction [Unknown]
  - Diabetes mellitus [Unknown]
  - Accidental overdose [Unknown]
  - Hypertension [Unknown]
  - Drug dose omission [Unknown]
